FAERS Safety Report 23567574 (Version 4)
Quarter: 2024Q2

REPORT INFORMATION
  Report Type: Spontaneous
  Country: US (occurrence: US)
  Receive Date: 20240226
  Receipt Date: 20240405
  Transmission Date: 20240716
  Serious: Yes (Other)
  Sender: FDA-Public Use
  Company Number: US-AMGEN-USASP2024030235

PATIENT
  Sex: Female

DRUGS (2)
  1. PROCRIT [Suspect]
     Active Substance: ERYTHROPOIETIN
     Indication: Nephrogenic anaemia
     Dosage: 100000 INTERNATIONAL UNIT
     Route: 065
     Dates: start: 2011
  2. PROCRIT [Suspect]
     Active Substance: ERYTHROPOIETIN
     Dosage: 100000 INTERNATIONAL UNIT
     Route: 065

REACTIONS (3)
  - Renal impairment [Recovering/Resolving]
  - Anaemia [Unknown]
  - Drug ineffective [Unknown]
